FAERS Safety Report 9162266 (Version 3)
Quarter: 2014Q2

REPORT INFORMATION
  Report Type: Report from Study
  Country: BD (occurrence: BD)
  Receive Date: 20130314
  Receipt Date: 20140420
  Transmission Date: 20141212
  Serious: Yes (Death)
  Sender: FDA-Public Use
  Company Number: PHHY2013BD024369

PATIENT
  Age: 100 Year
  Sex: Male

DRUGS (2)
  1. EXELON PATCH [Suspect]
     Indication: DEMENTIA
     Dosage: 4.6 MG, (5CM2) DAILY
     Route: 062
     Dates: start: 201209
  2. DAILY MULTIVITAMIN [Concomitant]
     Dosage: UNK UKN, UNK

REACTIONS (2)
  - Cardiac disorder [Fatal]
  - Cerebrovascular accident [Fatal]
